FAERS Safety Report 7635940-3 (Version None)
Quarter: 2011Q3

REPORT INFORMATION
  Report Type: 
  Country: None (occurrence: None)
  Receive Date: 20110726
  Receipt Date: 20110713
  Transmission Date: 20111222
  Serious: Yes (Other)
  Sender: FDA-Public Use
  Company Number: JP-ROCHE-711738

PATIENT
  Sex: Female

DRUGS (3)
  1. AVASTIN [Suspect]
     Indication: LUNG ADENOCARCINOMA METASTATIC
     Route: 041
     Dates: start: 20091202
  2. DOCETAXEL [Concomitant]
     Route: 041
     Dates: start: 20091202
  3. CARBOPLATIN [Concomitant]
     Dosage: AUC: 6
     Route: 041
     Dates: start: 20091202

REACTIONS (4)
  - NEUTROPHIL COUNT DECREASED [None]
  - THROMBOCYTOPENIA [None]
  - PALMAR-PLANTAR ERYTHRODYSAESTHESIA SYNDROME [None]
  - WHITE BLOOD CELL COUNT DECREASED [None]
